FAERS Safety Report 25229934 (Version 6)
Quarter: 2025Q3

REPORT INFORMATION
  Report Type: Report from Study
  Country: CA (occurrence: CA)
  Receive Date: 20250423
  Receipt Date: 20250729
  Transmission Date: 20251021
  Serious: Yes (Other)
  Sender: TAKEDA
  Company Number: CA-TAKEDA-2025TUS038566

PATIENT
  Age: 66 Year
  Sex: Male

DRUGS (12)
  1. HUMAN IMMUNOGLOBULIN G [Suspect]
     Active Substance: HUMAN IMMUNOGLOBULIN G
     Indication: Primary immunodeficiency syndrome
     Dosage: 12 GRAM, 1/WEEK
     Dates: start: 20181112, end: 20240426
  2. HYQVIA [Suspect]
     Active Substance: HUMAN IMMUNOGLOBULIN G\HYALURONIDASE (HUMAN RECOMBINANT)
     Indication: Primary immunodeficiency syndrome
     Dosage: 25 GRAM, Q4WEEKS
     Dates: start: 20250517
  3. HYQVIA [Suspect]
     Active Substance: HUMAN IMMUNOGLOBULIN G\HYALURONIDASE (HUMAN RECOMBINANT)
     Dosage: 25 GRAM, Q4WEEKS
  4. LASIX [Concomitant]
     Active Substance: FUROSEMIDE
  5. ALDACTONE [Concomitant]
     Active Substance: SPIRONOLACTONE
  6. NALTREXONE [Concomitant]
     Active Substance: NALTREXONE
  7. METHYLENE BLUE [Concomitant]
     Active Substance: METHYLENE BLUE
  8. DIMETHYL SULFOXIDE [Concomitant]
     Active Substance: DIMETHYL SULFOXIDE
  9. SPIRONOLACTONE [Concomitant]
     Active Substance: SPIRONOLACTONE
  10. FUROSEMIDE [Concomitant]
     Active Substance: FUROSEMIDE
  11. CARVEDILOL [Concomitant]
     Active Substance: CARVEDILOL
  12. SULFAMETHOXAZOLE\TRIMETHOPRIM [Concomitant]
     Active Substance: SULFAMETHOXAZOLE\TRIMETHOPRIM

REACTIONS (10)
  - Clostridium difficile infection [Unknown]
  - Ascites [Unknown]
  - Cachexia [Unknown]
  - Hepatic cirrhosis [Unknown]
  - Infection [Unknown]
  - Vocal cord disorder [Unknown]
  - Blood immunoglobulin G decreased [Unknown]
  - Herpes zoster [Recovering/Resolving]
  - Fluid retention [Unknown]
  - Neuralgia [Not Recovered/Not Resolved]

NARRATIVE: CASE EVENT DATE: 20240401
